FAERS Safety Report 4480135-8 (Version None)
Quarter: 2004Q4

REPORT INFORMATION
  Report Type: 
  Country: None (occurrence: None)
  Receive Date: 20041018
  Receipt Date: 20041011
  Transmission Date: 20050328
  Serious: No
  Sender: FDA-Public Use
  Company Number: 2004-121118-NL

PATIENT

DRUGS (2)
  1. MIRTAZAPINE [Suspect]
     Dosage: DF
  2. VENLAFAXINE HCL [Concomitant]

REACTIONS (1)
  - SEROTONIN SYNDROME [None]
